FAERS Safety Report 4498246-X (Version None)
Quarter: 2004Q4

REPORT INFORMATION
  Report Type: 
  Country: None (occurrence: None)
  Receive Date: 20040927
  Receipt Date: 20040609
  Transmission Date: 20050328
  Serious: No
  Sender: FDA-Public Use
  Company Number: USA040669725

PATIENT
  Age: 6 Year
  Sex: Male
  Weight: 23 kg

DRUGS (1)
  1. STRATTERA [Suspect]
     Dosage: 25 MG DAY
     Dates: start: 20040101

REACTIONS (5)
  - ABDOMINAL PAIN [None]
  - CRYING [None]
  - EATING DISORDER [None]
  - IRRITABILITY [None]
  - VOMITING [None]
